FAERS Safety Report 6668942-4 (Version None)
Quarter: 2010Q2

REPORT INFORMATION
  Report Type: 
  Country: None (occurrence: None)
  Receive Date: 20100402
  Receipt Date: 20100325
  Transmission Date: 20101027
  Serious: Yes (Other)
  Sender: FDA-Public Use
  Company Number: 2010PL000038

PATIENT
  Age: 40 Year
  Sex: Male
  Weight: 78.4723 kg

DRUGS (10)
  1. IMURAN [Suspect]
     Indication: COLITIS ULCERATIVE
     Dates: start: 20010601, end: 20090921
  2. HUMIRA [Suspect]
     Indication: CROHN'S DISEASE
     Dosage: 40 MG; Q2WK
     Dates: start: 20090123
  3. INFLIXIMAB [Suspect]
     Indication: COLITIS ULCERATIVE
     Dosage: 5 MG
     Dates: start: 20050320
  4. PREDNISONE [Concomitant]
  5. BALSALAZIDE DISODIUM [Concomitant]
  6. ESCITALOPRAM OXALATE [Concomitant]
  7. PROMETHAZINE [Concomitant]
  8. VIGRAN [Concomitant]
  9. CALCIUM CITRATE [Concomitant]
  10. ERGOCALCIFEROL [Concomitant]

REACTIONS (1)
  - MALIGNANT MELANOMA IN SITU [None]
